FAERS Safety Report 6601483-9 (Version None)
Quarter: 2010Q1

REPORT INFORMATION
  Report Type: 
  Country: None (occurrence: None)
  Receive Date: 20100225
  Receipt Date: 20100125
  Transmission Date: 20100710
  Serious: No
  Sender: FDA-Public Use
  Company Number: US-BAYER-200933393NA

PATIENT
  Age: 64 Year
  Sex: Male

DRUGS (1)
  1. ULTRAVIST 300 [Suspect]
     Indication: COMPUTERISED TOMOGRAM
     Dosage: TOTAL DAILY DOSE: 50 ML  UNIT DOSE: 50 ML
     Route: 042
     Dates: start: 20090811, end: 20090811

REACTIONS (3)
  - FOOD ALLERGY [None]
  - RASH [None]
  - URTICARIA [None]
